FAERS Safety Report 5314193-5 (Version None)
Quarter: 2007Q2

REPORT INFORMATION
  Report Type: 
  Country: None (occurrence: None)
  Receive Date: 20070501
  Receipt Date: 20070420
  Transmission Date: 20071010
  Serious: Yes (Other)
  Sender: FDA-Public Use
  Company Number: ES-MERCK-0704ESP00026

PATIENT
  Age: 20 Year
  Sex: Male

DRUGS (2)
  1. INVANZ [Suspect]
     Indication: PNEUMONIA ASPIRATION
     Route: 041
     Dates: start: 20070301, end: 20070401
  2. VALPROIC ACID [Suspect]
     Indication: PETIT MAL EPILEPSY
     Route: 065

REACTIONS (5)
  - ASPARTATE AMINOTRANSFERASE INCREASED [None]
  - DRUG INTERACTION [None]
  - DRUG LEVEL DECREASED [None]
  - GAMMA-GLUTAMYLTRANSFERASE INCREASED [None]
  - PETIT MAL EPILEPSY [None]
